FAERS Safety Report 14920253 (Version 1)
Quarter: 2018Q2

REPORT INFORMATION
  Report Type: Report from Study
  Country: BR (occurrence: BR)
  Receive Date: 20180521
  Receipt Date: 20180521
  Transmission Date: 20180711
  Serious: Yes (Other)
  Sender: FDA-Public Use
  Company Number: BR-EMD SERONO-9027690

PATIENT
  Age: 35 Year
  Sex: Female

DRUGS (2)
  1. REBIF [Suspect]
     Active Substance: INTERFERON BETA-1A
     Indication: MULTIPLE SCLEROSIS
     Route: 058
     Dates: start: 20080215, end: 201707
  2. REBIF [Suspect]
     Active Substance: INTERFERON BETA-1A
     Dosage: THERAPY RESTARTED
     Route: 058
     Dates: start: 2017

REACTIONS (7)
  - Drug dose omission [Unknown]
  - Tremor [Unknown]
  - Headache [Unknown]
  - Device issue [Unknown]
  - Seizure [Unknown]
  - Chikungunya virus infection [Unknown]
  - Product availability issue [Unknown]

NARRATIVE: CASE EVENT DATE: 201707
